FAERS Safety Report 22144913 (Version 1)
Quarter: 2023Q1

REPORT INFORMATION
  Report Type: Spontaneous
  Country: US (occurrence: US)
  Receive Date: 20230328
  Receipt Date: 20230328
  Transmission Date: 20230417
  Serious: No
  Sender: FDA-Public Use
  Company Number: US-GLENMARK PHARMACEUTICALS-2023GMK079776

PATIENT

DRUGS (2)
  1. IMIQUIMOD [Suspect]
     Active Substance: IMIQUIMOD
     Indication: Melanocytic naevus
     Dosage: UNK, QD
     Route: 061
     Dates: start: 20230301
  2. IMIQUIMOD [Suspect]
     Active Substance: IMIQUIMOD
     Indication: Precancerous skin lesion

REACTIONS (2)
  - Product use in unapproved indication [Unknown]
  - Application site pain [Unknown]

NARRATIVE: CASE EVENT DATE: 20230301
